FAERS Safety Report 5316975-2 (Version None)
Quarter: 2007Q2

REPORT INFORMATION
  Report Type: 
  Country: None (occurrence: None)
  Receive Date: 20070504
  Receipt Date: 20070502
  Transmission Date: 20071010
  Serious: Yes (Other)
  Sender: FDA-Public Use
  Company Number: 2007AC00644

PATIENT
  Age: 40 Year
  Sex: Female

DRUGS (1)
  1. GOSERELIN [Suspect]
     Indication: UTERINE LEIOMYOMA
     Route: 058

REACTIONS (1)
  - DEGENERATION OF UTERINE FIBROID [None]
